FAERS Safety Report 6266353-7 (Version None)
Quarter: 2009Q3

REPORT INFORMATION
  Report Type: 
  Country: None (occurrence: None)
  Receive Date: 20090713
  Receipt Date: 20090630
  Transmission Date: 20100115
  Serious: Yes (Other)
  Sender: FDA-Public Use
  Company Number: BE-ELI_LILLY_AND_COMPANY-BE200906002892

PATIENT
  Sex: Male
  Weight: 82 kg

DRUGS (5)
  1. BYETTA [Suspect]
     Indication: TYPE 2 DIABETES MELLITUS
     Dosage: 5 UG, 2/D
     Route: 058
     Dates: start: 20090610
  2. DEANXIT [Concomitant]
     Dosage: UNK, UNKNOWN
     Route: 065
  3. PANTOZOL [Concomitant]
     Dosage: 1 D/F, DAILY (1/D)
  4. GLURENORM [Concomitant]
     Indication: TYPE 2 DIABETES MELLITUS
     Dosage: 15 D/F, DAILY (1/D)
  5. SULFONAMIDES [Concomitant]
     Dosage: UNK, UNKNOWN
     Route: 065

REACTIONS (4)
  - HYPERHIDROSIS [None]
  - NAUSEA [None]
  - PALPITATIONS [None]
  - PRESYNCOPE [None]
